FAERS Safety Report 6681680-7 (Version None)
Quarter: 2010Q2

REPORT INFORMATION
  Report Type: 
  Country: None (occurrence: None)
  Receive Date: 20100412
  Receipt Date: 20100326
  Transmission Date: 20101027
  Serious: Yes (Other)
  Sender: FDA-Public Use
  Company Number: AUR-APL-2010-01017

PATIENT
  Age: 57 Year
  Sex: Female
  Weight: 49 kg

DRUGS (3)
  1. PAROXETINE HCL [Suspect]
     Indication: PANIC DISORDER
     Dosage: 10MG - DAILY - ORAL
     Route: 048
     Dates: start: 20091020, end: 20100122
  2. JUVELA (TOCOPHEROL) [Concomitant]
  3. ZOLPIDEM TARTRATE [Concomitant]

REACTIONS (1)
  - CERVIX CARCINOMA [None]
